FAERS Safety Report 4372230-9 (Version None)
Quarter: 2004Q2

REPORT INFORMATION
  Report Type: 
  Country: None (occurrence: None)
  Receive Date: 20040602
  Receipt Date: 20040514
  Transmission Date: 20050107
  Serious: Yes (Death, Hospitalization)
  Sender: FDA-Public Use
  Company Number: DSA_24446_2004

PATIENT
  Age: 79 Year
  Sex: Female

DRUGS (9)
  1. DILTIAZEM [Suspect]
     Dosage: 180 MG Q DAY
  2. SIMVASTATIN [Suspect]
     Dosage: 60 MG Q DAY
  3. WARFARIN SODIUM [Concomitant]
  4. HORMONE REPLACEMENT THERAPY [Concomitant]
  5. ISOSORBIDE MONONITRATE [Concomitant]
  6. FUROSEMIDE [Concomitant]
  7. PERHEXILINE [Concomitant]
  8. ATENOLOL [Concomitant]
  9. PANTOPRAZOLE [Concomitant]

REACTIONS (4)
  - CARDIAC FAILURE [None]
  - HAEMODIALYSIS [None]
  - RENAL FAILURE ACUTE [None]
  - RHABDOMYOLYSIS [None]
